FAERS Safety Report 10146711 (Version 1)
Quarter: 2014Q2

REPORT INFORMATION
  Report Type: Spontaneous
  Country: US (occurrence: None)
  Receive Date: 20140430
  Receipt Date: 20140430
  Transmission Date: 20141212
  Serious: Yes (Hospitalization)
  Sender: FDA-Public Use
  Company Number: None

PATIENT
  Age: 52 Year
  Sex: Female

DRUGS (19)
  1. RIBAVIRIN [Suspect]
     Indication: INFECTION
     Route: 048
     Dates: start: 20140120, end: 20140124
  2. ACETAMINOPHEN [Concomitant]
  3. ACYCLOVIR [Concomitant]
  4. AZITHROMYCIN [Concomitant]
  5. BENZONATATE [Concomitant]
  6. CALCIUM + VITAMIN D [Concomitant]
  7. CEFEPIME [Concomitant]
  8. CHOLECALCIFEROL [Concomitant]
  9. GUAIFENESIN-CODEINE [Concomitant]
  10. FISH OIL [Concomitant]
  11. INSULIN ASPART [Concomitant]
  12. LANSOPRAZOLE [Concomitant]
  13. LEVOTHYROXINE [Concomitant]
  14. LORAZEPAM [Concomitant]
  15. LOSARTAN [Concomitant]
  16. METHYLPREDNISOLONE [Concomitant]
  17. OXYCODONE [Concomitant]
  18. SULFAMETHOXAZOLE-TRIMETHOPRIM [Concomitant]
  19. VORICONAZOLE [Concomitant]

REACTIONS (7)
  - Hypoxia [None]
  - Respiratory failure [None]
  - Septic shock [None]
  - Platelet count decreased [None]
  - Red blood cell count decreased [None]
  - Haemoglobin decreased [None]
  - Haematocrit decreased [None]
